FAERS Safety Report 7913405-9 (Version None)
Quarter: 2011Q4

REPORT INFORMATION
  Report Type: 
  Country: None (occurrence: None)
  Receive Date: 20111115
  Receipt Date: 20111108
  Transmission Date: 20120403
  Serious: Yes (Hospitalization)
  Sender: FDA-Public Use
  Company Number: US-BIOGENIDEC-2011BI026136

PATIENT
  Age: 56 Year
  Sex: Male

DRUGS (2)
  1. AVONEX [Suspect]
     Route: 030
     Dates: start: 20060811
  2. AVONEX [Suspect]
     Indication: MULTIPLE SCLEROSIS
     Route: 030
     Dates: start: 19990222, end: 20060622

REACTIONS (4)
  - SINUSITIS [None]
  - HIP ARTHROPLASTY [None]
  - PULMONARY HAEMORRHAGE [None]
  - BLINDNESS UNILATERAL [None]
